FAERS Safety Report 7373266-6 (Version None)
Quarter: 2011Q1

REPORT INFORMATION
  Report Type: 
  Country: None (occurrence: None)
  Receive Date: 20110324
  Receipt Date: 20101223
  Transmission Date: 20110831
  Serious: No
  Sender: FDA-Public Use
  Company Number: US-BAYER-2011-024351

PATIENT
  Sex: Female
  Weight: 66 kg

DRUGS (4)
  1. OMEPRAZOLE [Concomitant]
  2. LIPITOR [Concomitant]
  3. CALCIUM [Concomitant]
  4. MULTI-VITAMINS [Suspect]
     Indication: VITAMIN SUPPLEMENTATION
     Dosage: UNK
     Dates: start: 20101223

REACTIONS (1)
  - NAUSEA [None]
